FAERS Safety Report 4315829-8 (Version None)
Quarter: 2004Q1

REPORT INFORMATION
  Report Type: 
  Country: None (occurrence: None)
  Receive Date: 20040310
  Receipt Date: 20040225
  Transmission Date: 20041129
  Serious: Yes (Hospitalization)
  Sender: FDA-Public Use
  Company Number: 2004CG00401

PATIENT
  Age: 22 Year
  Sex: Female
  Weight: 40 kg

DRUGS (2)
  1. ZOMIG [Suspect]
     Dosage: 15 MG DAILY PO
     Route: 048
     Dates: start: 20040211, end: 20040211
  2. CORDARONE [Concomitant]

REACTIONS (2)
  - ACCIDENTAL OVERDOSE [None]
  - HYPERTENSIVE CRISIS [None]
